FAERS Safety Report 4708426-3 (Version None)
Quarter: 2005Q3

REPORT INFORMATION
  Report Type: 
  Country: None (occurrence: None)
  Receive Date: 20050705
  Receipt Date: 20050620
  Transmission Date: 20060218
  Serious: Yes (Hospitalization, Other)
  Sender: FDA-Public Use
  Company Number: 2005068211

PATIENT
  Age: 86 Year
  Sex: Male

DRUGS (13)
  1. NEURONTIN [Suspect]
     Indication: NEURALGIA
     Dosage: 900 MG (300 MG, 3 IN 1 D) ORAL
     Route: 048
     Dates: start: 20000101
  2. GABAPENTIN [Suspect]
     Indication: NEURALGIA
     Dosage: 1800 MG (600 MG, 3 IN 1 D) ORAL
     Route: 048
     Dates: start: 20050425
  3. BEXTRA [Suspect]
     Indication: ILL-DEFINED DISORDER
  4. METHADONE HCL [Suspect]
     Indication: NEURALGIA
     Dates: start: 20050101, end: 20050101
  5. ISOSORBIDE [Concomitant]
  6. LISINOPRIL [Concomitant]
  7. FUROSEMIDE [Concomitant]
  8. POTASSIUM CHLORIDE [Concomitant]
  9. WARFARIN [Concomitant]
  10. TERAZOSIN HCL [Concomitant]
  11. NIFEDIPINE [Concomitant]
  12. ALL OTHER THERAPEUTIC PRODUCTS [Concomitant]
  13. SIMVASTATIN [Concomitant]

REACTIONS (5)
  - FLATULENCE [None]
  - MALAISE [None]
  - ORAL INTAKE REDUCED [None]
  - PHARMACEUTICAL PRODUCT COMPLAINT [None]
  - WEIGHT DECREASED [None]
